FAERS Safety Report 7777248-1 (Version None)
Quarter: 2011Q3

REPORT INFORMATION
  Report Type: 
  Country: None (occurrence: None)
  Receive Date: 20110926
  Receipt Date: 20110913
  Transmission Date: 20111222
  Serious: Yes (Other)
  Sender: FDA-Public Use
  Company Number: PHHO2009CH12625

PATIENT
  Sex: Male

DRUGS (5)
  1. SANDIMMUNE [Suspect]
     Indication: RENAL TRANSPLANT
     Dosage: UNK
     Route: 048
     Dates: start: 20091022
  2. PREDNISOLONE [Suspect]
     Indication: RENAL TRANSPLANT
     Dosage: 30 MG/ DAY
     Dates: start: 20091020
  3. EVEROLIMUS [Suspect]
     Indication: RENAL TRANSPLANT
     Dosage: 1.5 G, QD
     Route: 048
     Dates: start: 20090121, end: 20091013
  4. MYFORTIC [Suspect]
     Indication: RENAL TRANSPLANT
     Dosage: 720 MG, UNK
     Route: 048
     Dates: start: 20091022
  5. MYFORTIC [Suspect]
     Dosage: 1440 MG
     Route: 048
     Dates: start: 20091013

REACTIONS (3)
  - KIDNEY TRANSPLANT REJECTION [None]
  - RENAL IMPAIRMENT [None]
  - DRUG INEFFECTIVE [None]
